FAERS Safety Report 7899600-6 (Version None)
Quarter: 2011Q4

REPORT INFORMATION
  Report Type: 
  Country: None (occurrence: None)
  Receive Date: 20111107
  Receipt Date: 20110915
  Transmission Date: 20120403
  Serious: No
  Sender: FDA-Public Use
  Company Number: US-AMGEN-USASP2011047775

PATIENT
  Sex: Female

DRUGS (1)
  1. ENBREL [Suspect]
     Indication: RHEUMATOID ARTHRITIS
     Dosage: 50 MG, QWK
     Dates: start: 20110824

REACTIONS (7)
  - DYSGEUSIA [None]
  - ASTHENIA [None]
  - PYREXIA [None]
  - ABDOMINAL PAIN LOWER [None]
  - BACK PAIN [None]
  - COLD SWEAT [None]
  - FATIGUE [None]
